FAERS Safety Report 20546984 (Version 3)
Quarter: 2022Q2

REPORT INFORMATION
  Report Type: Spontaneous
  Country: US (occurrence: US)
  Receive Date: 20220303
  Receipt Date: 20220421
  Transmission Date: 20220720
  Serious: Yes (Hospitalization)
  Sender: FDA-Public Use
  Company Number: US-PARATEK PHARMACEUTICALS, INC.-2022PTK00050

PATIENT
  Age: 78 Year
  Sex: Female
  Weight: 57.143 kg

DRUGS (14)
  1. NUZYRA [Suspect]
     Active Substance: OMADACYCLINE
     Indication: Mycobacterium avium complex infection
     Dosage: 300 MG, 1X/DAY
     Route: 048
     Dates: start: 20220211
  2. RIFAMPIN [Concomitant]
     Active Substance: RIFAMPIN
  3. ETHAMBUTOL [Concomitant]
     Active Substance: ETHAMBUTOL HYDROCHLORIDE
  4. AZITHROMYCIN [Concomitant]
     Active Substance: AZITHROMYCIN
  5. ARIKAYCE [Concomitant]
     Active Substance: AMIKACIN
  6. SYNTHROID [Concomitant]
     Active Substance: LEVOTHYROXINE SODIUM
  7. CLONIDINE [Concomitant]
     Active Substance: CLONIDINE
  8. SPRINOLACTONE [Concomitant]
  9. EDARBI [Concomitant]
     Active Substance: AZILSARTAN KAMEDOXOMIL
  10. OMEPRAZOLE [Concomitant]
     Active Substance: OMEPRAZOLE
  11. NEBIVOLOL HYDROCHLORIDE [Concomitant]
     Active Substance: NEBIVOLOL HYDROCHLORIDE
  12. ROSUVASTATIN [Concomitant]
     Active Substance: ROSUVASTATIN
  13. VANCOMYCIN [Concomitant]
     Active Substance: VANCOMYCIN
  14. DILTIAZEM [Concomitant]
     Active Substance: DILTIAZEM

REACTIONS (7)
  - Hyponatraemia [Unknown]
  - Hypertensive urgency [Not Recovered/Not Resolved]
  - Malaise [Not Recovered/Not Resolved]
  - Off label use [Not Recovered/Not Resolved]
  - Abdominal discomfort [Not Recovered/Not Resolved]
  - Nausea [Recovered/Resolved]
  - Constipation [Not Recovered/Not Resolved]

NARRATIVE: CASE EVENT DATE: 20220211
